FAERS Safety Report 8948024 (Version 2)
Quarter: 2014Q2

REPORT INFORMATION
  Report Type: Spontaneous
  Country: US (occurrence: US)
  Receive Date: 20121204
  Receipt Date: 20140401
  Transmission Date: 20141212
  Serious: No
  Sender: FDA-Public Use
  Company Number: US-ASTRAZENECA-2012SE23306

PATIENT
  Age: 57 Year
  Sex: Female
  Weight: 79.4 kg

DRUGS (6)
  1. NEXIUM [Suspect]
     Indication: GASTROOESOPHAGEAL REFLUX DISEASE
     Route: 048
  2. NEXIUM [Suspect]
     Indication: HIATUS HERNIA
     Route: 048
  3. PRILOSEC [Suspect]
     Dosage: OMEPRAZOLE GENERIC
     Route: 048
  4. PRILOSEC [Suspect]
     Dosage: PRILOSEC: 20 MG, UNKNOWN FREQUENCY
     Route: 048
  5. PRILOSEC OTC [Suspect]
     Route: 048
     Dates: start: 2010
  6. ACIDOPHILIS [Concomitant]
     Indication: PROBIOTIC THERAPY

REACTIONS (11)
  - Tendon pain [Unknown]
  - Barrett^s oesophagus [Unknown]
  - Mucosal erosion [Unknown]
  - Dyspepsia [Unknown]
  - Dry mouth [Unknown]
  - Abdominal discomfort [Unknown]
  - Diarrhoea [Unknown]
  - Hiatus hernia [Unknown]
  - Drug dose omission [Unknown]
  - Intentional product misuse [Unknown]
  - Drug ineffective [Unknown]
